FAERS Safety Report 9728032 (Version 1)
Quarter: 2013Q4

REPORT INFORMATION
  Report Type: Spontaneous
  Country: US (occurrence: None)
  Receive Date: 20131203
  Receipt Date: 20131203
  Transmission Date: 20140711
  Serious: Yes (Disabling)
  Sender: FDA-Public Use
  Company Number: None

PATIENT
  Age: 36 Year
  Sex: Male
  Weight: 185 kg

DRUGS (1)
  1. CEFDINIR [Suspect]
     Indication: PHARYNGITIS STREPTOCOCCAL
     Route: 048
     Dates: start: 20131130, end: 20131201

REACTIONS (1)
  - Neuropathy peripheral [None]
